FAERS Safety Report 4800193-8 (Version None)
Quarter: 2005Q4

REPORT INFORMATION
  Report Type: 
  Country: None (occurrence: None)
  Receive Date: 20051013
  Receipt Date: 20051013
  Transmission Date: 20060501
  Serious: Yes (Other)
  Sender: FDA-Public Use
  Company Number: None

PATIENT
  Age: 77 Year
  Sex: Male
  Weight: 54.3 kg

DRUGS (12)
  1. LEXAPRO [Suspect]
     Indication: DEPRESSION
     Dosage: 20ML VIA J-TUBE DAILY
     Dates: start: 20050920
  2. PROTONIX [Concomitant]
  3. SYNTHROID [Concomitant]
  4. IMIPENIM [Concomitant]
  5. INSULIN [Concomitant]
  6. PROCRIT [Concomitant]
  7. DILAUDID [Concomitant]
  8. ZOFRAN [Concomitant]
  9. APAP TAB [Concomitant]
  10. VANCO [Concomitant]
  11. ATIVAN [Concomitant]
  12. LASIX [Concomitant]

REACTIONS (1)
  - BLOOD SODIUM DECREASED [None]
